FAERS Safety Report 4717954-6 (Version None)
Quarter: 2005Q3

REPORT INFORMATION
  Report Type: 
  Country: None (occurrence: None)
  Receive Date: 20050719
  Receipt Date: 20050125
  Transmission Date: 20060218
  Serious: Yes (Hospitalization)
  Sender: FDA-Public Use
  Company Number: 2005022899

PATIENT
  Age: 74 Year
  Sex: Female

DRUGS (4)
  1. CELECOXIB (CELECOXIB) [Suspect]
     Indication: ARTHRALGIA
     Dosage: UNKNOWN (UNKNOWN), ORAL
     Route: 048
  2. LOSARTAN POTASSIUM [Concomitant]
  3. IBUPROFEN [Concomitant]
  4. METRONIDAZOLE [Concomitant]

REACTIONS (2)
  - ABDOMINAL PAIN UPPER [None]
  - GASTROINTESTINAL HAEMORRHAGE [None]
